FAERS Safety Report 16542213 (Version 7)
Quarter: 2020Q1

REPORT INFORMATION
  Report Type: Report from Study
  Country: SE (occurrence: SE)
  Receive Date: 20190708
  Receipt Date: 20200117
  Transmission Date: 20200409
  Serious: Yes (Hospitalization, Other)
  Sender: FDA-Public Use
  Company Number: SE-ALNYLAM PHARMACEUTICALS, INC.-ALN-2019-000487

PATIENT
  Age: 63 Year
  Sex: Female
  Weight: 83 kg

DRUGS (24)
  1. CLEMASTINE [Concomitant]
     Active Substance: CLEMASTINE
     Indication: PROPHYLAXIS
     Dosage: 2 MILLIGRAM, Q3W
     Route: 042
     Dates: start: 20190625
  2. PREDNISOLON [Concomitant]
     Active Substance: PREDNISOLONE
     Indication: PROPHYLAXIS AGAINST TRANSPLANT REJECTION
     Dosage: 5 MILLIGRAM, QD
     Route: 048
     Dates: start: 20050907
  3. ERGENYL RETARD [Concomitant]
     Active Substance: VALPROIC ACID
     Indication: PROPHYLAXIS
     Dosage: 300 MILLIGRAM, BID
     Route: 048
     Dates: start: 20000101
  4. KALCIPOS-D [Concomitant]
     Active Substance: CALCIUM CARBONATE\CHOLECALCIFEROL
     Indication: OSTEOPOROSIS PROPHYLAXIS
  5. PARACETAMOL [Concomitant]
     Active Substance: ACETAMINOPHEN
     Indication: PROPHYLAXIS
     Dosage: 500 MILLIGRAM, Q3W
     Route: 048
     Dates: start: 20190625
  6. MULTIVITAMIN [Concomitant]
     Active Substance: VITAMINS
     Indication: VITAMIN SUPPLEMENTATION
     Dosage: 1 TBL, QD
     Route: 048
     Dates: start: 20190625
  7. LOPERAMID [Concomitant]
     Active Substance: LOPERAMIDE
     Indication: PROPHYLAXIS AGAINST DIARRHOEA
     Dosage: 2 MILLIGRAM, PRN
     Route: 048
     Dates: start: 20031217
  8. ALN-TTR02 [Suspect]
     Active Substance: PATISIRAN SODIUM
     Indication: HEREDITARY NEUROPATHIC AMYLOIDOSIS
     Dosage: 0.3 MILLIGRAM/KILOGRAM, Q3W
     Dates: start: 20190625
  9. GABAPENTIN. [Concomitant]
     Active Substance: GABAPENTIN
     Indication: PAIN
  10. RANITIDINE. [Concomitant]
     Active Substance: RANITIDINE
     Indication: PROPHYLAXIS
     Dosage: 50 MILLIGRAM, Q3W
     Route: 042
     Dates: start: 20190625
  11. BETAMETHASONE. [Concomitant]
     Active Substance: BETAMETHASONE
     Indication: PROPHYLAXIS
     Dosage: 8 MILLIGRAM, Q3W
     Route: 042
     Dates: start: 20190625
  12. RANITIDIN [Concomitant]
     Active Substance: RANITIDINE HYDROCHLORIDE
     Indication: PROPHYLAXIS AGAINST GASTROINTESTINAL ULCER
     Dosage: 150 MILLIGRAM, BID
     Route: 048
     Dates: start: 20051128, end: 20191120
  13. CALCICHEW D3 [Concomitant]
     Active Substance: CALCIUM\CHOLECALCIFEROL
     Indication: OSTEOPOROSIS PROPHYLAXIS
     Dosage: 1 TBL, BID
     Route: 048
     Dates: start: 20060223, end: 20190611
  14. FURIX [Concomitant]
     Indication: PROPHYLAXIS
     Dosage: 20 MILLIGRAM, PRN
     Route: 048
     Dates: start: 20190611
  15. ALVEDON [Concomitant]
     Active Substance: ACETAMINOPHEN
     Indication: PAIN
     Dosage: 500 MILLIGRAM, PRN (MAX 4G /DAY)
     Route: 048
     Dates: start: 20160622
  16. GABAPENTIN. [Concomitant]
     Active Substance: GABAPENTIN
     Indication: PROPHYLAXIS
     Dosage: 300 MILLIGRAM, BID
     Route: 048
     Dates: start: 20040922
  17. KALCIPOS-D [Concomitant]
     Active Substance: CALCIUM CARBONATE\CHOLECALCIFEROL
     Indication: VITAMIN SUPPLEMENTATION
     Dosage: 500/800 MILIGRAM, QD
     Route: 048
     Dates: start: 20190611
  18. PROGRAFT [Concomitant]
     Active Substance: TACROLIMUS
     Indication: PROPHYLAXIS AGAINST TRANSPLANT REJECTION
     Dosage: 0.5 MILLIGRAM, BID
     Route: 048
     Dates: start: 20071108
  19. SELOKENZOC [Concomitant]
     Active Substance: METOPROLOL SUCCINATE
     Indication: PALPITATIONS
     Dosage: 25 MILLIGRAM, QD
     Route: 048
     Dates: start: 20130213
  20. PROGRAFT [Concomitant]
     Active Substance: TACROLIMUS
     Dosage: 1 MILLIGRAM, BID
     Route: 048
     Dates: start: 20080211
  21. METRONIDAZOL [Concomitant]
     Active Substance: METRONIDAZOLE
     Indication: PROPHYLAXIS AGAINST DIARRHOEA
     Dosage: 500 MILLIGRAM, PRN (1-2 PER DAY FOR 1 WEEK, RESPITED AFTER 5 WEEK)
     Route: 048
     Dates: start: 20090518
  22. MAGNESIUM [Concomitant]
     Active Substance: MAGNESIUM
     Indication: OSTEOPOROSIS PROPHYLAXIS
     Dosage: 400 INTERNATIONAL UNIT, BID
     Route: 048
     Dates: start: 20060223, end: 20190611
  23. LATANOPROST. [Concomitant]
     Active Substance: LATANOPROST
     Indication: GLAUCOMA
     Dosage: 1 DROP, QD
     Dates: start: 20181026
  24. OCULAC [Concomitant]
     Indication: LACRIMATION DECREASED
     Dosage: 50 MILLIGRAM PER MILLILITRE, PRN
     Dates: start: 20120705

REACTIONS (1)
  - Infusion related reaction [Recovered/Resolved]

NARRATIVE: CASE EVENT DATE: 20190625
